FAERS Safety Report 13939799 (Version 1)
Quarter: 2017Q3

REPORT INFORMATION
  Report Type: Spontaneous
  Country: US (occurrence: US)
  Receive Date: 20170906
  Receipt Date: 20170906
  Transmission Date: 20171127
  Serious: Yes (Other)
  Sender: FDA-Public Use
  Company Number: US-AMGEN-USASP2017132580

PATIENT
  Age: 64 Year
  Sex: Male
  Weight: 102 kg

DRUGS (20)
  1. XTANDI [Concomitant]
     Active Substance: ENZALUTAMIDE
     Indication: PROSTATE CANCER
     Dosage: 40 MG, UNK
     Route: 065
     Dates: start: 20151027
  2. XTANDI [Concomitant]
     Active Substance: ENZALUTAMIDE
     Indication: METASTASES TO BONE
     Dosage: 40 MG, UNK
     Route: 065
     Dates: start: 201601
  3. CALCIUM [Concomitant]
     Active Substance: CALCIUM
  4. SPIRONOLACTONE. [Concomitant]
     Active Substance: SPIRONOLACTONE
  5. ASPIRIN. [Concomitant]
     Active Substance: ASPIRIN
     Dosage: 325 MG, UNK
  6. XGEVA [Suspect]
     Active Substance: DENOSUMAB
     Indication: PRODUCT USED FOR UNKNOWN INDICATION
     Dosage: UNK
     Route: 065
     Dates: start: 20151027
  7. VITAMIN D [Concomitant]
     Active Substance: CHOLECALCIFEROL
  8. ZETIA [Concomitant]
     Active Substance: EZETIMIBE
     Dosage: 10 MG, UNK
  9. COREG [Concomitant]
     Active Substance: CARVEDILOL
     Dosage: 12.5 MG, UNK
     Dates: start: 20071213
  10. IBUPROFEN. [Concomitant]
     Active Substance: IBUPROFEN
  11. FENOFIBRATE. [Concomitant]
     Active Substance: FENOFIBRATE
  12. LISINOPRIL. [Concomitant]
     Active Substance: LISINOPRIL
  13. XOFIGO [Concomitant]
     Active Substance: RADIUM RA-223 DICHLORIDE
     Dosage: UNK
     Dates: start: 20170510
  14. DEGARELIX [Concomitant]
     Active Substance: DEGARELIX
     Dosage: 80 MG, UNK
     Route: 058
     Dates: start: 201509
  15. CRESTOR [Concomitant]
     Active Substance: ROSUVASTATIN CALCIUM
     Dosage: 10 MG, UNK
     Dates: start: 20071213
  16. METFORMIN [Concomitant]
     Active Substance: METFORMIN HYDROCHLORIDE
     Dosage: 500 MG, UNK
     Dates: start: 20100504
  17. LUPRON [Concomitant]
     Active Substance: LEUPROLIDE ACETATE
     Dosage: 11.25 MG, UNK
  18. METOPROLOL TARTRATE. [Concomitant]
     Active Substance: METOPROLOL TARTRATE
  19. DIFLORASONE [Concomitant]
     Active Substance: DIFLORASONE DIACETATE
  20. NORCO [Concomitant]
     Active Substance: ACETAMINOPHEN\HYDROCODONE BITARTRATE
     Dosage: 5-325 MG, UNK

REACTIONS (6)
  - Initial insomnia [Not Recovered/Not Resolved]
  - Bone pain [Not Recovered/Not Resolved]
  - Asthenia [Not Recovered/Not Resolved]
  - Fatigue [Not Recovered/Not Resolved]
  - Prostatic specific antigen increased [Unknown]
  - Pleurisy [Recovered/Resolved]

NARRATIVE: CASE EVENT DATE: 20170601
